FAERS Safety Report 10252732 (Version 4)
Quarter: 2014Q3

REPORT INFORMATION
  Report Type: Spontaneous
  Country: US (occurrence: US)
  Receive Date: 20140623
  Receipt Date: 20140917
  Transmission Date: 20150326
  Serious: Yes (Hospitalization)
  Sender: FDA-Public Use
  Company Number: US-JNJFOC-20140613783

PATIENT
  Age: 67 Year
  Sex: Female
  Weight: 50 kg

DRUGS (27)
  1. DITROPAN [Concomitant]
     Active Substance: OXYBUTYNIN CHLORIDE
  2. FISH OIL [Concomitant]
     Active Substance: FISH OIL
  3. RED YEAST RICE EXTRACT [Concomitant]
  4. ZANTAC [Concomitant]
     Active Substance: RANITIDINE HYDROCHLORIDE
  5. FLAXSEED [Concomitant]
     Active Substance: FLAX SEED
  6. HYDROCODONE [Concomitant]
     Active Substance: HYDROCODONE
  7. NASONEX [Concomitant]
     Active Substance: MOMETASONE FUROATE
  8. VITAMIN B6 [Concomitant]
     Active Substance: PYRIDOXINE HYDROCHLORIDE
  9. VITAMIN D3 [Concomitant]
     Active Substance: CHOLECALCIFEROL
  10. MEPRON [Concomitant]
     Active Substance: ATOVAQUONE
     Indication: PROPHYLAXIS
     Route: 048
  11. CITRACAL+D [Concomitant]
  12. IBUPROFEN. [Concomitant]
     Active Substance: IBUPROFEN
  13. IMBRUVICA [Suspect]
     Active Substance: IBRUTINIB
     Indication: CHRONIC LYMPHOCYTIC LEUKAEMIA
     Route: 048
     Dates: start: 20140408, end: 20140529
  14. ACYCLOVIR. [Concomitant]
     Active Substance: ACYCLOVIR
     Indication: PROPHYLAXIS
     Route: 048
  15. IMODIUM AD [Concomitant]
     Active Substance: LOPERAMIDE HYDROCHLORIDE
  16. PROCHLORPERAZINE MALEATE. [Concomitant]
     Active Substance: PROCHLORPERAZINE MALEATE
  17. VAGIFEM [Concomitant]
     Active Substance: ESTRADIOL
     Route: 067
  18. NU IRON [Concomitant]
  19. CLOPIDOGREL [Concomitant]
     Active Substance: CLOPIDOGREL BISULFATE
     Route: 048
  20. NIFEDICAL [Concomitant]
  21. NEUPOGEN [Concomitant]
     Active Substance: FILGRASTIM
  22. ASPIRIN. [Concomitant]
     Active Substance: ASPIRIN
  23. FOLBIC [Concomitant]
     Active Substance: CYANOCOBALAMIN\FOLIC ACID\PYRIDOXINE
  24. ZETIA [Concomitant]
     Active Substance: EZETIMIBE
  25. PROCRIT [Concomitant]
     Active Substance: ERYTHROPOIETIN
  26. IVIGLOB EX [Concomitant]
     Active Substance: HUMAN IMMUNOGLOBULIN G
     Indication: INFECTION
     Dates: start: 20120918
  27. DEXILANT [Concomitant]
     Active Substance: DEXLANSOPRAZOLE

REACTIONS (7)
  - Fatigue [Unknown]
  - Impaired gastric emptying [Recovered/Resolved]
  - Renal cyst [Recovered/Resolved]
  - Decreased appetite [Recovered/Resolved]
  - Gastritis [Recovered/Resolved]
  - Weight decreased [Recovered/Resolved]
  - Asthenia [Unknown]

NARRATIVE: CASE EVENT DATE: 20140520
